FAERS Safety Report 9695012 (Version 2)
Quarter: 2013Q4

REPORT INFORMATION
  Report Type: Spontaneous
  Country: US (occurrence: US)
  Receive Date: 20131119
  Receipt Date: 20131119
  Transmission Date: 20140711
  Serious: Yes (Disabling, Other)
  Sender: FDA-Public Use
  Company Number: US-ROCHE-920201065008

PATIENT
  Age: 73 Year
  Sex: Male

DRUGS (3)
  1. INTERFERON ALFA-2A [Suspect]
     Indication: CHOROIDAL NEOVASCULARISATION
     Dosage: 3X10X6 U/M2 EVERY OTHER DAY
     Route: 058
  2. INTERFERON ALFA-2A [Suspect]
     Dosage: 6.5X10X6U; DAILY ADMINISTRATION APPROXIMATELY
     Route: 058
  3. INTERFERON ALFA-2A [Suspect]
     Dosage: DOSAGE WAS REDUCED TO EVERY OTHER DAY
     Route: 058

REACTIONS (3)
  - Retinopathy [Recovering/Resolving]
  - Detachment of retinal pigment epithelium [Unknown]
  - Retinal haemorrhage [Unknown]
